FAERS Safety Report 7313893-5 (Version None)
Quarter: 2011Q1

REPORT INFORMATION
  Report Type: 
  Country: None (occurrence: None)
  Receive Date: 20110225
  Receipt Date: 20110214
  Transmission Date: 20110831
  Serious: Yes (Other)
  Sender: FDA-Public Use
  Company Number: DE-SANOFI-AVENTIS-2011SA009197

PATIENT
  Age: 61 Year
  Sex: Female

DRUGS (1)
  1. MULTAQ [Suspect]
     Indication: ATRIAL FIBRILLATION
     Route: 048
     Dates: start: 20101101

REACTIONS (8)
  - NAUSEA [None]
  - AGITATION [None]
  - TREMOR [None]
  - ATRIAL FIBRILLATION [None]
  - LOCAL SWELLING [None]
  - SKIN DISORDER [None]
  - VISION BLURRED [None]
  - DIARRHOEA [None]
